FAERS Safety Report 15242102 (Version 2)
Quarter: 2018Q3

REPORT INFORMATION
  Report Type: Spontaneous
  Country: PT (occurrence: PT)
  Receive Date: 20180806
  Receipt Date: 20180821
  Transmission Date: 20181010
  Serious: Yes (Life-Threatening, Hospitalization, Other)
  Sender: FDA-Public Use
  Company Number: PT-BAUSCH-BL-2018-020574

PATIENT
  Age: 48 Year
  Sex: Female
  Weight: 77 kg

DRUGS (17)
  1. METFORMIN [Interacting]
     Active Substance: METFORMIN HYDROCHLORIDE
     Indication: WEIGHT CONTROL
     Route: 048
  2. ORLISTAT. [Interacting]
     Active Substance: ORLISTAT
     Indication: WEIGHT CONTROL
     Route: 048
  3. ORLISTAT. [Interacting]
     Active Substance: ORLISTAT
     Indication: OFF LABEL USE
  4. CHROMIUM PICOLINATE [Interacting]
     Active Substance: CHROMIUM PICOLINATE
     Indication: WEIGHT CONTROL
     Route: 048
  5. CHLORDIAZEPOXIDE. [Suspect]
     Active Substance: CHLORDIAZEPOXIDE
     Indication: WEIGHT CONTROL
     Route: 048
  6. BUPROPION HYDROCHLORIDE. [Interacting]
     Active Substance: BUPROPION HYDROCHLORIDE
     Indication: OFF LABEL USE
  7. FUROSEMIDE. [Interacting]
     Active Substance: FUROSEMIDE
     Indication: WEIGHT CONTROL
     Route: 048
  8. TOPIRAMATE. [Interacting]
     Active Substance: TOPIRAMATE
     Indication: WEIGHT CONTROL
     Route: 048
  9. PHENOLPHTHALEIN [Interacting]
     Active Substance: PHENOLPHTHALEIN
     Indication: WEIGHT CONTROL
     Route: 048
  10. FLECAINIDE [Concomitant]
     Active Substance: FLECAINIDE
     Indication: PRODUCT USED FOR UNKNOWN INDICATION
     Route: 065
  11. METFORMIN [Interacting]
     Active Substance: METFORMIN HYDROCHLORIDE
     Indication: OFF LABEL USE
  12. BUPROPION HYDROCHLORIDE. [Interacting]
     Active Substance: BUPROPION HYDROCHLORIDE
     Indication: WEIGHT CONTROL
     Route: 048
  13. MINULET [Interacting]
     Active Substance: ETHINYL ESTRADIOL\GESTODENE
     Indication: CONTRACEPTION
     Route: 048
  14. CENTELLA ASIATICA [Interacting]
     Active Substance: CENTELLA ASIATICA
     Indication: WEIGHT CONTROL
     Route: 048
  15. CHLORDIAZEPOXIDE. [Interacting]
     Active Substance: CHLORDIAZEPOXIDE
     Indication: OFF LABEL USE
  16. CASCARA [Interacting]
     Active Substance: RHAMNUS PURSHIANA BARK EXTRACT
     Indication: WEIGHT CONTROL
     Dosage: 100 UNSPECIFIED UNIT
     Route: 048
  17. FUROSEMIDE. [Interacting]
     Active Substance: FUROSEMIDE
     Indication: OFF LABEL USE

REACTIONS (8)
  - Slow response to stimuli [Recovering/Resolving]
  - Headache [Recovering/Resolving]
  - Thalamic infarction [Not Recovered/Not Resolved]
  - Fatigue [Recovering/Resolving]
  - Bradyphrenia [Recovering/Resolving]
  - Product use in unapproved indication [Recovered/Resolved]
  - Cerebral venous thrombosis [Recovering/Resolving]
  - Drug interaction [Recovered/Resolved]

NARRATIVE: CASE EVENT DATE: 201708
